FAERS Safety Report 24573275 (Version 2)
Quarter: 2025Q1

REPORT INFORMATION
  Report Type: Report from Study
  Country: DE (occurrence: DE)
  Receive Date: 20241101
  Receipt Date: 20250310
  Transmission Date: 20250408
  Serious: Yes (Other)
  Sender: PFIZER
  Company Number: DE-PFIZER INC-PV202400140817

PATIENT
  Age: 46 Year
  Sex: Male

DRUGS (2)
  1. TOFACITINIB CITRATE [Suspect]
     Active Substance: TOFACITINIB CITRATE
  2. ENTRESTO [Concomitant]
     Active Substance: SACUBITRIL\VALSARTAN

REACTIONS (2)
  - Left ventricular dysfunction [Not Recovered/Not Resolved]
  - Hypertensive heart disease [Not Recovered/Not Resolved]

NARRATIVE: CASE EVENT DATE: 20240105
